FAERS Safety Report 9166050 (Version 1)
Quarter: 2013Q1

REPORT INFORMATION
  Report Type: Spontaneous
  Country: IT (occurrence: None)
  Receive Date: 20130301
  Receipt Date: 20130301
  Transmission Date: 20140127
  Serious: Yes (Hospitalization)
  Sender: FDA-Public Use
  Company Number: INT_00224_2013

PATIENT
  Age: 3 Year
  Sex: Female

DRUGS (1)
  1. CEFTRIAXONE (CEFTRIAXON) (NOT SPECIFIED) [Suspect]
     Indication: BRONCHITIS
     Route: 030
     Dates: start: 20130127, end: 20130131

REACTIONS (2)
  - Erythema [None]
  - Pruritus [None]
